FAERS Safety Report 16974075 (Version 2)
Quarter: 2019Q4

REPORT INFORMATION
  Report Type: Spontaneous
  Country: FR (occurrence: FR)
  Receive Date: 20191030
  Receipt Date: 20191122
  Transmission Date: 20200122
  Serious: Yes (Hospitalization, Other)
  Sender: FDA-Public Use
  Company Number: FR-PFIZER INC-2019467126

PATIENT
  Age: 68 Year
  Sex: Female

DRUGS (6)
  1. BROMAZEPAM [Suspect]
     Active Substance: BROMAZEPAM
     Dosage: UNK, DAILY (30 DOSAGE FORM IN TOTAL)
     Route: 048
     Dates: start: 20171107, end: 20171107
  2. PAROXETINE. [Suspect]
     Active Substance: PAROXETINE
     Dosage: UNK (52 DOSAGE FORM IN TOTAL)
     Route: 048
     Dates: start: 20171107, end: 20171107
  3. DONORMYL [DOXYLAMINE SUCCINATE] [Suspect]
     Active Substance: DOXYLAMINE SUCCINATE
     Dosage: UNK, DAILY (10 DOSAGE FORM IN TOTAL)
     Route: 048
     Dates: start: 20171107, end: 20171107
  4. PANTOPRAZOLE [Suspect]
     Active Substance: PANTOPRAZOLE
     Dosage: UNK UNK, DAILY (10 DOSAGE FORM IN TOTAL)
     Route: 048
     Dates: start: 20171107, end: 20171107
  5. DEPAMIDE [Suspect]
     Active Substance: VALPROMIDE
     Dosage: UNK (38 DOSAGE FORM IN TOTAL)
     Route: 048
     Dates: start: 20171107, end: 20171107
  6. ZOLPIDEM [Suspect]
     Active Substance: ZOLPIDEM TARTRATE
     Dosage: UNK (14 DOSAGE FORM IN TOTAL)
     Route: 048
     Dates: start: 20171107, end: 20171107

REACTIONS (4)
  - Fall [Recovered/Resolved with Sequelae]
  - Rhabdomyolysis [Recovered/Resolved]
  - Drug abuse [Recovered/Resolved]
  - Overdose [Unknown]

NARRATIVE: CASE EVENT DATE: 20171107
